FAERS Safety Report 18315815 (Version 10)
Quarter: 2022Q3

REPORT INFORMATION
  Report Type: Spontaneous
  Country: CA (occurrence: CA)
  Receive Date: 20200926
  Receipt Date: 20220815
  Transmission Date: 20221027
  Serious: Yes (Other)
  Sender: FDA-Public Use
  Company Number: CA-CELLTRION INC.-2019CA026603

PATIENT

DRUGS (28)
  1. INFLECTRA [Suspect]
     Active Substance: INFLIXIMAB-DYYB
     Indication: Colitis ulcerative
     Dosage: 5 MG/KG, 0, 2, 6, THEN EVERY 8 WEEKS
     Route: 042
     Dates: start: 20191027, end: 20200330
  2. INFLECTRA [Suspect]
     Active Substance: INFLIXIMAB-DYYB
     Dosage: 5 MG/KG, 0, 2, 6, THEN EVERY 8 WEEKS
     Route: 042
     Dates: start: 20191111
  3. INFLECTRA [Suspect]
     Active Substance: INFLIXIMAB-DYYB
     Dosage: 5 MG/KG, 0, 2, 6, THEN EVERY 8 WEEKS
     Route: 042
     Dates: start: 20200203
  4. INFLECTRA [Suspect]
     Active Substance: INFLIXIMAB-DYYB
     Dosage: 5 MG/KG, 0, 2, 6, THEN EVERY 8 WEEKS
     Route: 042
     Dates: start: 20200330
  5. INFLECTRA [Suspect]
     Active Substance: INFLIXIMAB-DYYB
     Dosage: 5 MG/KG, EVERY 4 WEEKS
     Route: 042
     Dates: start: 20200428, end: 20220627
  6. INFLECTRA [Suspect]
     Active Substance: INFLIXIMAB-DYYB
     Dosage: 5 MG/KG, EVERY 4 WEEKS
     Route: 042
     Dates: start: 20200622
  7. INFLECTRA [Suspect]
     Active Substance: INFLIXIMAB-DYYB
     Dosage: 5 MG/KG, EVERY 4 WEEKS
     Route: 042
     Dates: start: 20200720
  8. INFLECTRA [Suspect]
     Active Substance: INFLIXIMAB-DYYB
     Dosage: 5 MG/KG, EVERY 4 WEEKS
     Route: 042
     Dates: start: 20200914
  9. INFLECTRA [Suspect]
     Active Substance: INFLIXIMAB-DYYB
     Dosage: 445 MG
     Route: 042
     Dates: start: 20201013
  10. INFLECTRA [Suspect]
     Active Substance: INFLIXIMAB-DYYB
     Dosage: 5 MG/KG, EVERY 4 WEEKS
     Route: 042
     Dates: start: 20201109
  11. INFLECTRA [Suspect]
     Active Substance: INFLIXIMAB-DYYB
     Dosage: 5 MG/KG, EVERY 4 WEEKS
     Route: 042
     Dates: start: 20201208
  12. INFLECTRA [Suspect]
     Active Substance: INFLIXIMAB-DYYB
     Dosage: 330 MG
     Route: 042
     Dates: start: 20210104
  13. INFLECTRA [Suspect]
     Active Substance: INFLIXIMAB-DYYB
     Dosage: 5 MG/KG, EVERY 4 WEEKS
     Route: 042
     Dates: start: 20210525
  14. INFLECTRA [Suspect]
     Active Substance: INFLIXIMAB-DYYB
     Dosage: 5 MG/KG, EVERY 4 WEEKS
     Route: 042
     Dates: start: 20210621
  15. INFLECTRA [Suspect]
     Active Substance: INFLIXIMAB-DYYB
     Dosage: 5 MG/KG, EVERY 4 WEEKS
     Route: 042
     Dates: start: 20220627
  16. INFLECTRA [Suspect]
     Active Substance: INFLIXIMAB-DYYB
     Dosage: 5 MG/KG  EVERY 5 WEEKS, NOT YET STARTED
  17. INFLECTRA [Suspect]
     Active Substance: INFLIXIMAB-DYYB
     Dosage: 400 MG, EVERY 5 WEEKS
     Route: 042
     Dates: start: 20220804
  18. MESALAMINE [Concomitant]
     Active Substance: MESALAMINE
     Dosage: 1 DF, 1X/DAY NIGHTLY, SUPPOSITORY
     Route: 065
  19. CALCIUM CARBONATE [Concomitant]
     Active Substance: CALCIUM CARBONATE
     Indication: Osteoporosis prophylaxis
     Dosage: 1200 MG, DAILY
     Route: 065
     Dates: start: 201910
  20. CALCIUM CARBONATE [Concomitant]
     Active Substance: CALCIUM CARBONATE
     Dosage: 1 DF
  21. FOLATE SODIUM [Concomitant]
     Active Substance: FOLATE SODIUM
     Dosage: 5 MG, ON DAYS THAT METHOTREXATE IS NOT TAKEN
     Route: 048
     Dates: start: 201910
  22. FOLATE SODIUM [Concomitant]
     Active Substance: FOLATE SODIUM
     Dosage: 1 DF
  23. FOLATE SODIUM [Concomitant]
     Active Substance: FOLATE SODIUM
     Dosage: 5 MG, 3X WEEKLY
     Route: 048
  24. METHOTREXATE [Concomitant]
     Active Substance: METHOTREXATE
     Dosage: 15 MG, WEEKLY
     Route: 048
     Dates: start: 20191027
  25. PENTASA [Concomitant]
     Active Substance: MESALAMINE
     Dosage: 1 DF, DAILY
     Route: 054
  26. CHOLECALCIFEROL [Concomitant]
     Active Substance: CHOLECALCIFEROL
     Indication: Osteoporosis prophylaxis
     Dosage: 1000 IU
     Dates: start: 201910
  27. CHOLECALCIFEROL [Concomitant]
     Active Substance: CHOLECALCIFEROL
     Dosage: 1 DF
  28. FOLIC ACID [Concomitant]
     Active Substance: FOLIC ACID
     Dosage: 5 MG, 3X/DAY
     Route: 048

REACTIONS (9)
  - Hypotension [Unknown]
  - Off label use [Unknown]
  - Off label use [Unknown]
  - Intentional product use issue [Unknown]
  - Incorrect dose administered [Unknown]
  - Blood pressure fluctuation [Unknown]
  - Condition aggravated [Recovering/Resolving]
  - Heart rate decreased [Unknown]
  - Rash [Unknown]

NARRATIVE: CASE EVENT DATE: 20191111
